FAERS Safety Report 19091351 (Version 1)
Quarter: 2021Q2

REPORT INFORMATION
  Report Type: Spontaneous
  Country: US (occurrence: US)
  Receive Date: 20210405
  Receipt Date: 20210405
  Transmission Date: 20210717
  Serious: Yes (Other)
  Sender: FDA-Public Use
  Company Number: US-SA-2021SA111133

PATIENT
  Age: 56 Year
  Sex: Female

DRUGS (22)
  1. ALBUTEROL [SALBUTAMOL] [Concomitant]
     Active Substance: ALBUTEROL
  2. ASSURE [Concomitant]
     Active Substance: BENZETHONIUM CHLORIDE
     Dosage: BP MIS
  3. DEXILANT [Concomitant]
     Active Substance: DEXLANSOPRAZOLE
  4. GLUCAGON. [Concomitant]
     Active Substance: GLUCAGON
  5. ONDANSETRON [Concomitant]
     Active Substance: ONDANSETRON
  6. EPINEPHRINE. [Concomitant]
     Active Substance: EPINEPHRINE
     Dosage: 1MG/10ML
  7. ADVAIR HFA [Concomitant]
     Active Substance: FLUTICASONE PROPIONATE\SALMETEROL XINAFOATE
     Indication: ADVERSE EVENT
     Dosage: 230?21MCG
  8. CREON [Concomitant]
     Active Substance: PANCRELIPASE AMYLASE\PANCRELIPASE LIPASE\PANCRELIPASE PROTEASE
     Dosage: 24000?76UNIT
  9. VITAMIN D3 [Concomitant]
     Active Substance: CHOLECALCIFEROL
     Dosage: 25 MCG(100)
  10. ATORVASTATIN [Concomitant]
     Active Substance: ATORVASTATIN
  11. MIRALAX [Concomitant]
     Active Substance: POLYETHYLENE GLYCOL 3350
     Dosage: 17GM/SCOOP
  12. NOVOLOG [Concomitant]
     Active Substance: INSULIN ASPART
     Dosage: 100 UNITS/ML
  13. SINGULAIR [Concomitant]
     Active Substance: MONTELUKAST SODIUM
  14. DUPIXENT [Suspect]
     Active Substance: DUPILUMAB
     Indication: ASTHMA
     Dosage: 300 MG, QOW
     Route: 058
     Dates: start: 2019
  15. RAMIPRIL. [Concomitant]
     Active Substance: RAMIPRIL
  16. ACEON [Concomitant]
     Active Substance: PERINDOPRIL ERBUMINE
     Dosage: 1MG
  17. OXYCODONE [Concomitant]
     Active Substance: OXYCODONE
     Dosage: 5?325MG
  18. OXYCONTIN TR [Concomitant]
     Active Substance: OXYCODONE HYDROCHLORIDE
  19. PINOSOL [AZULENE;EUCALYPTUS GLOBULUS ESSENTIAL OIL;MENTHA X PIPERITA E [Concomitant]
     Dosage: 1MG
  20. BACLOFEN. [Concomitant]
     Active Substance: BACLOFEN
     Dosage: 20 MG
  21. MULTI VITAMIN [ASCORBIC ACID;FOLIC ACID;NICOTINIC ACID;PYRIDOXINE HYDR [Concomitant]
  22. PROMETHAZINE [PROMETHAZINE HYDROCHLORIDE] [Concomitant]
     Active Substance: PROMETHAZINE HYDROCHLORIDE

REACTIONS (6)
  - Dyspnoea [Not Recovered/Not Resolved]
  - Malaise [Not Recovered/Not Resolved]
  - Cough [Not Recovered/Not Resolved]
  - COVID-19 pneumonia [Not Recovered/Not Resolved]
  - Product use issue [Unknown]
  - Product dose omission issue [Unknown]

NARRATIVE: CASE EVENT DATE: 2019
